FAERS Safety Report 9196516 (Version 1)
Quarter: 2013Q1

REPORT INFORMATION
  Report Type: Spontaneous
  Country: US (occurrence: None)
  Receive Date: 20120709
  Receipt Date: 20120709
  Transmission Date: 20140127
  Serious: Yes (Hospitalization)
  Sender: FDA-Public Use
  Company Number: 2012HGS-003405

PATIENT
  Age: 49 Year
  Sex: Female
  Weight: 65.77 kg

DRUGS (3)
  1. BENLYSTA [Suspect]
     Indication: SYSTEMIC LUPUS ERYTHEMATOSUS
     Dates: start: 20120315
  2. TAMBOCOR [Concomitant]
  3. PYRIDIUM [Concomitant]

REACTIONS (9)
  - Cystitis [None]
  - Abdominal pain [None]
  - Bladder pain [None]
  - Contusion [None]
  - Gingival bleeding [None]
  - Memory impairment [None]
  - Vomiting [None]
  - Depression [None]
  - Headache [None]
